FAERS Safety Report 8545583-5 (Version None)
Quarter: 2012Q3

REPORT INFORMATION
  Report Type: 
  Country: None (occurrence: None)
  Receive Date: 20120727
  Receipt Date: 20111020
  Transmission Date: 20120928
  Serious: No
  Sender: FDA-Public Use
  Company Number: US-ASTRAZENECA-2011SE63777

PATIENT
  Sex: Male

DRUGS (2)
  1. SEROQUEL [Suspect]
     Indication: POST-TRAUMATIC STRESS DISORDER
     Route: 048
  2. CYMBALTA [Concomitant]

REACTIONS (5)
  - BLOOD GLUCOSE ABNORMAL [None]
  - SOMNOLENCE [None]
  - OFF LABEL USE [None]
  - DIABETES MELLITUS [None]
  - DRUG DOSE OMISSION [None]
